FAERS Safety Report 6517825-9 (Version None)
Quarter: 2009Q4

REPORT INFORMATION
  Report Type: 
  Country: None (occurrence: None)
  Receive Date: 20091224
  Receipt Date: 20091215
  Transmission Date: 20100525
  Serious: Yes (Hospitalization, Other)
  Sender: FDA-Public Use
  Company Number: PHHY2009CO00952

PATIENT
  Sex: Female

DRUGS (5)
  1. ACLASTA [Suspect]
     Indication: OSTEOPOROSIS
     Dosage: 1 INFUSION (5MG/100ML SOLUTION) ANNUAL
     Route: 042
     Dates: start: 20081218, end: 20081218
  2. METOPROLOL TARTRATE [Concomitant]
     Dosage: 100 MG, Q12H
  3. FUROSEMIDE [Concomitant]
     Dosage: 20 MG/DAY
  4. CALCIUM [Concomitant]
     Dosage: 600 MG/DAY
  5. SYNVISC [Concomitant]

REACTIONS (8)
  - ANAEMIA [None]
  - FALL [None]
  - FEMORAL NECK FRACTURE [None]
  - HIP ARTHROPLASTY [None]
  - HYPERTENSIVE CRISIS [None]
  - OSTEOSYNTHESIS [None]
  - RADIUS FRACTURE [None]
  - TRANSFUSION [None]
